FAERS Safety Report 8819160 (Version 2)
Quarter: 2012Q4

REPORT INFORMATION
  Report Type: 
  Country: US (occurrence: US)
  Receive Date: 20121001
  Receipt Date: 20121113
  Transmission Date: 20130627
  Serious: No
  Sender: FDA-Public Use
  Company Number: US-PFIZER INC-2012241782

PATIENT
  Age: 25 Year
  Sex: Female

DRUGS (4)
  1. ALPRAZOLAM [Suspect]
     Dosage: 2 mg, 2x/day PRN
     Route: 048
  2. QUETIAPINE [Concomitant]
     Dosage: 100 mg, 1-2 QHS
  3. LITHIUM CARBONATE [Concomitant]
     Dosage: 300 mg, 2x/day
  4. FLUOXETINE [Concomitant]
     Dosage: 2 every morningi with food

REACTIONS (1)
  - Drug ineffective [Unknown]
